FAERS Safety Report 17765584 (Version 1)
Quarter: 2020Q2

REPORT INFORMATION
  Report Type: Spontaneous
  Country: US (occurrence: US)
  Receive Date: 20200509
  Receipt Date: 20200509
  Transmission Date: 20200714
  Serious: No
  Sender: FDA-Public Use
  Company Number: None

PATIENT
  Age: 31 Year
  Sex: Female
  Weight: 101.25 kg

DRUGS (2)
  1. ELURYNG [Suspect]
     Active Substance: ETHINYL ESTRADIOL\ETONOGESTREL
     Indication: CONTRACEPTION
     Dosage: ?          QUANTITY:1 RING;OTHER FREQUENCY:3 CONSECUTIVE WEEK;?
     Route: 067
     Dates: start: 20200503, end: 20200508
  2. SPIRONOLACTONE 75MG [Concomitant]

REACTIONS (10)
  - Irritability [None]
  - Dysmenorrhoea [None]
  - Abdominal pain [None]
  - Vaginal discharge [None]
  - Mood altered [None]
  - Abdominal pain upper [None]
  - Abdominal distension [None]
  - Headache [None]
  - Pelvic pain [None]
  - Nausea [None]

NARRATIVE: CASE EVENT DATE: 20200508
